FAERS Safety Report 6927900-2 (Version None)
Quarter: 2010Q3

REPORT INFORMATION
  Report Type: 
  Country: None (occurrence: None)
  Receive Date: 20100816
  Receipt Date: 20100816
  Transmission Date: 20110219
  Serious: Yes (Other)
  Sender: FDA-Public Use
  Company Number: None

PATIENT
  Sex: Female
  Weight: 72.1219 kg

DRUGS (1)
  1. SIMVASTATIN [Suspect]
     Indication: HYPERLIPIDAEMIA
     Dosage: 1 TAB DAILY PO
     Route: 048
     Dates: start: 20091101, end: 20100422

REACTIONS (1)
  - LEUKOCYTOCLASTIC VASCULITIS [None]
